FAERS Safety Report 10867380 (Version 2)
Quarter: 2015Q1

REPORT INFORMATION
  Report Type: Report from Study
  Country: US (occurrence: US)
  Receive Date: 20150225
  Receipt Date: 20150227
  Transmission Date: 20150721
  Serious: Yes (Death)
  Sender: FDA-Public Use
  Company Number: US-SA-2015SA022874

PATIENT
  Age: 67 Year
  Sex: Male
  Weight: 92 kg

DRUGS (11)
  1. FLUOROURACIL. [Suspect]
     Active Substance: FLUOROURACIL
     Route: 042
     Dates: start: 20150123, end: 20150126
  2. VIAGRA [Concomitant]
     Active Substance: SILDENAFIL CITRATE
     Dates: start: 2005
  3. ATORVASTATIN [Concomitant]
     Active Substance: ATORVASTATIN
     Dates: start: 2005
  4. OMEPRAZOLE. [Concomitant]
     Active Substance: OMEPRAZOLE
     Dates: start: 20150123
  5. CIPRO [Concomitant]
     Active Substance: CIPROFLOXACIN HYDROCHLORIDE
     Dates: start: 20150127
  6. ONDANSETRON [Concomitant]
     Active Substance: ONDANSETRON
     Dates: start: 20150123
  7. DEXAMETHASONE. [Concomitant]
     Active Substance: DEXAMETHASONE
     Dates: start: 20150122
  8. DOCUSATE SODIUM. [Concomitant]
     Active Substance: DOCUSATE SODIUM
     Dates: start: 20150121, end: 20150210
  9. CISPLATIN. [Suspect]
     Active Substance: CISPLATIN
     Route: 042
     Dates: start: 20150123
  10. JEVTANA [Suspect]
     Active Substance: CABAZITAXEL
     Indication: SQUAMOUS CELL CARCINOMA OF THE TONGUE
     Route: 042
     Dates: start: 20150123
  11. PERCOCET [Concomitant]
     Active Substance: ACETAMINOPHEN\OXYCODONE HYDROCHLORIDE
     Dosage: 5-325 MG.
     Dates: start: 20150121, end: 20150209

REACTIONS (2)
  - Pneumothorax [Fatal]
  - Dyspnoea [Fatal]

NARRATIVE: CASE EVENT DATE: 20150216
